FAERS Safety Report 10932620 (Version 1)
Quarter: 2015Q1

REPORT INFORMATION
  Report Type: Spontaneous
  Country: US (occurrence: None)
  Receive Date: 20150319
  Receipt Date: 20150319
  Transmission Date: 20150721
  Serious: Yes (Other)
  Sender: FDA-Public Use
  Company Number: None

PATIENT
  Age: 46 Year
  Sex: Male

DRUGS (6)
  1. GABAPENTIN. [Concomitant]
     Active Substance: GABAPENTIN
  2. SUDOGEST [Concomitant]
     Active Substance: PSEUDOEPHEDRINE HYDROCHLORIDE
  3. TOPIRAMATE 25MG [Suspect]
     Active Substance: TOPIRAMATE
     Indication: HEADACHE
     Dosage: 1 BID ORAL
     Route: 048
     Dates: start: 20150227, end: 20150309
  4. MUCINEX [Concomitant]
     Active Substance: GUAIFENESIN
  5. APAP [Concomitant]
     Active Substance: ACETAMINOPHEN
  6. AMITRIPTYLINE [Concomitant]
     Active Substance: AMITRIPTYLINE

REACTIONS (1)
  - Angle closure glaucoma [None]

NARRATIVE: CASE EVENT DATE: 20150309
